FAERS Safety Report 6000192-7 (Version None)
Quarter: 2008Q4

REPORT INFORMATION
  Report Type: 
  Country: None (occurrence: None)
  Receive Date: 20081211
  Receipt Date: 20081201
  Transmission Date: 20090506
  Serious: Yes (Death, Hospitalization)
  Sender: FDA-Public Use
  Company Number: TUK2008A00144

PATIENT
  Age: 77 Year
  Sex: Male

DRUGS (6)
  1. METFORMIN HCL [Suspect]
     Indication: DIABETES MELLITUS
  2. ACE INHIBITOR (ACE INHIBITOR NOS) [Suspect]
  3. LOOP DIURETICS (DIURETICS) [Concomitant]
  4. ACETYLSALICYLIC ACID SRT [Concomitant]
  5. INSULIN (INSULIN) [Concomitant]
  6. STATIN (HMG COA REDUCTASE INHIBITORS) [Concomitant]

REACTIONS (2)
  - INTERMITTENT CLAUDICATION [None]
  - SEPSIS [None]
